FAERS Safety Report 5317791-8 (Version None)
Quarter: 2007Q2

REPORT INFORMATION
  Report Type: 
  Country: None (occurrence: None)
  Receive Date: 20070502
  Receipt Date: 20070502
  Transmission Date: 20071010
  Serious: Yes (Other)
  Sender: FDA-Public Use
  Company Number: None

PATIENT
  Sex: Male
  Weight: 68 kg

DRUGS (2)
  1. BACLOFEN [Suspect]
     Indication: PATHOGEN RESISTANCE
     Dosage: TID PO
     Route: 048
     Dates: start: 20070426, end: 20070429
  2. LINEZOLID [Suspect]
     Indication: BACTERIAL INFECTION
     Dosage: Q12H PO
     Route: 048
     Dates: start: 20070425, end: 20070430

REACTIONS (3)
  - DRUG INTERACTION [None]
  - TIC [None]
  - VERBIGERATION [None]
